FAERS Safety Report 9892822 (Version 3)
Quarter: 2014Q4

REPORT INFORMATION
  Report Type: Report from Study
  Country: BR (occurrence: BR)
  Receive Date: 20140213
  Receipt Date: 20141029
  Transmission Date: 20150529
  Serious: Yes (Other)
  Sender: FDA-Public Use
  Company Number: BR-ROCHE-1213170

PATIENT
  Age: 33 Year
  Sex: Female
  Weight: 87 kg

DRUGS (4)
  1. ACTEMRA [Suspect]
     Active Substance: TOCILIZUMAB
     Indication: RHEUMATOID ARTHRITIS
     Dosage: MOST RECENT INFUSION WAS PERFORMED ON 01-APR-2012
     Route: 065
     Dates: start: 20100408, end: 201204
  2. PREDNISONE. [Concomitant]
     Active Substance: PREDNISONE
     Route: 065
  3. ACTEMRA [Suspect]
     Active Substance: TOCILIZUMAB
     Route: 065
     Dates: start: 20140917
  4. TYLENOL [Concomitant]
     Active Substance: ACETAMINOPHEN

REACTIONS (11)
  - Arthralgia [Not Recovered/Not Resolved]
  - Abortion spontaneous [Unknown]
  - Thyroid disorder [Unknown]
  - Maternal exposure before pregnancy [Unknown]
  - Abdominal pain upper [Unknown]
  - Arthritis [Not Recovered/Not Resolved]
  - Gestational diabetes [Not Recovered/Not Resolved]
  - Glucose tolerance impaired [Not Recovered/Not Resolved]
  - Drug ineffective [Unknown]
  - Suppressed lactation [Unknown]
  - Nausea [Unknown]

NARRATIVE: CASE EVENT DATE: 201312
